FAERS Safety Report 6396053-4 (Version None)
Quarter: 2009Q4

REPORT INFORMATION
  Report Type: 
  Country: None (occurrence: None)
  Receive Date: 20091009
  Receipt Date: 20091008
  Transmission Date: 20100525
  Serious: Yes (Death)
  Sender: FDA-Public Use
  Company Number: US-B.I. PHARMACEUTICALS,INC./RIDGEFIELD-2009-BP-11822BP

PATIENT
  Sex: Male

DRUGS (2)
  1. AGGRENOX [Suspect]
     Dates: start: 20070101
  2. FLOMAX [Concomitant]
     Dates: start: 20080401

REACTIONS (1)
  - DEATH [None]
